FAERS Safety Report 21284034 (Version 1)
Quarter: 2022Q3

REPORT INFORMATION
  Report Type: Spontaneous
  Country: FR (occurrence: FR)
  Receive Date: 20220901
  Receipt Date: 20220901
  Transmission Date: 20221027
  Serious: Yes (Hospitalization, Other)
  Sender: FDA-Public Use
  Company Number: None

PATIENT
  Age: 40 Year
  Sex: Male

DRUGS (3)
  1. ELIQUIS [Interacting]
     Active Substance: APIXABAN
     Indication: Thrombosis prophylaxis
     Dosage: 2/J
     Route: 048
     Dates: start: 202110, end: 20211112
  2. KEPPRA [Interacting]
     Active Substance: LEVETIRACETAM
     Indication: Epilepsy
     Dosage: AU LONG COURS 2/J
     Route: 048
  3. PRADAXA [Interacting]
     Active Substance: DABIGATRAN ETEXILATE MESYLATE
     Indication: Thrombosis prophylaxis
     Dosage: 2/J
     Route: 048

REACTIONS (2)
  - Drug interaction [Not Recovered/Not Resolved]
  - Ischaemic stroke [Recovered/Resolved]

NARRATIVE: CASE EVENT DATE: 20211112
